FAERS Safety Report 5021710-1 (Version None)
Quarter: 2006Q2

REPORT INFORMATION
  Report Type: 
  Country: None (occurrence: None)
  Receive Date: 20060605
  Receipt Date: 20060523
  Transmission Date: 20061013
  Serious: Yes (Hospitalization, Disabling, Other)
  Sender: FDA-Public Use
  Company Number: 2005161471

PATIENT
  Age: 56 Year
  Sex: Female
  Weight: 142.8831 kg

DRUGS (4)
  1. CELEBREX [Suspect]
     Indication: PAIN
     Dosage: (200 MG, 2 IN 1 D), ORAL
     Route: 048
     Dates: start: 19990101
  2. CELEBREX [Suspect]
     Indication: RHEUMATOID ARTHRITIS
     Dosage: (200 MG, 2 IN 1 D), ORAL
     Route: 048
     Dates: start: 19990101
  3. BEXTRA [Suspect]
     Indication: PAIN
  4. VIOXX [Suspect]
     Indication: ILL-DEFINED DISORDER
     Dosage: (25 MG), ORAL
     Route: 048

REACTIONS (6)
  - CARDIAC FAILURE CONGESTIVE [None]
  - CARDIOVASCULAR DISORDER [None]
  - CEREBROVASCULAR ACCIDENT [None]
  - CHEST PAIN [None]
  - HYPERTENSION [None]
  - THROMBOSIS [None]
